FAERS Safety Report 4512045-1 (Version None)
Quarter: 2004Q4

REPORT INFORMATION
  Report Type: 
  Country: None (occurrence: None)
  Receive Date: 20041123
  Receipt Date: 20041111
  Transmission Date: 20050328
  Serious: Yes (Death)
  Sender: FDA-Public Use
  Company Number: PERC20040059

PATIENT
  Age: 22 Year
  Sex: Female
  Weight: 62.1428 kg

DRUGS (2)
  1. PERCOCET [Suspect]
  2. METHADONE [Suspect]

REACTIONS (22)
  - ACCIDENTAL DEATH [None]
  - ACNE [None]
  - ALCOHOL USE [None]
  - BONE MARROW DISORDER [None]
  - CELL DEATH [None]
  - CHILLS [None]
  - COMA [None]
  - DERMATITIS ACNEIFORM [None]
  - DRUG TOXICITY [None]
  - HAEMORRHAGE [None]
  - HAEMORRHAGE INTRACRANIAL [None]
  - HEPATIC CONGESTION [None]
  - MOUTH HAEMORRHAGE [None]
  - MULTIPLE DRUG OVERDOSE [None]
  - MUSCLE HAEMORRHAGE [None]
  - PANCREATIC DISORDER [None]
  - PULMONARY CONGESTION [None]
  - PULMONARY OEDEMA [None]
  - RENAL DISORDER [None]
  - SPLEEN CONGESTION [None]
  - VAGINAL WALL CONGESTION [None]
  - WHITE BLOOD CELL COUNT INCREASED [None]
